FAERS Safety Report 4704080-5 (Version None)
Quarter: 2005Q2

REPORT INFORMATION
  Report Type: 
  Country: None (occurrence: None)
  Receive Date: 20050630
  Receipt Date: 20050627
  Transmission Date: 20051028
  Serious: Yes (Hospitalization)
  Sender: FDA-Public Use
  Company Number: US-BRISTOL-MYERS SQUIBB COMPANY-13017553

PATIENT
  Age: 81 Year
  Sex: Male

DRUGS (1)
  1. CARDIOLITE [Suspect]
     Route: 042
     Dates: start: 20050624, end: 20050624

REACTIONS (4)
  - DIZZINESS [None]
  - FLUSHING [None]
  - NAUSEA [None]
  - PHARYNGOLARYNGEAL PAIN [None]
